FAERS Safety Report 11474530 (Version 1)
Quarter: 2015Q3

REPORT INFORMATION
  Report Type: Spontaneous
  Country: US (occurrence: None)
  Receive Date: 20150908
  Receipt Date: 20150908
  Transmission Date: 20151125
  Serious: Yes (Disabling, Other)
  Sender: FDA-Public Use
  Company Number: None

PATIENT
  Age: 19 Year
  Sex: Female
  Weight: 61.24 kg

DRUGS (1)
  1. MIRENA [Suspect]
     Active Substance: LEVONORGESTREL

REACTIONS (10)
  - Headache [None]
  - Palpitations [None]
  - Mood swings [None]
  - Dizziness [None]
  - Muscle spasms [None]
  - Feeling abnormal [None]
  - Abdominal pain upper [None]
  - Weight increased [None]
  - Restlessness [None]
  - Nausea [None]

NARRATIVE: CASE EVENT DATE: 20090209
